FAERS Safety Report 6985926-7 (Version None)
Quarter: 2010Q3

REPORT INFORMATION
  Report Type: 
  Country: None (occurrence: None)
  Receive Date: 20100915
  Receipt Date: 20100903
  Transmission Date: 20110219
  Serious: Yes (Life-Threatening, Hospitalization, Other)
  Sender: FDA-Public Use
  Company Number: CH-PFIZER INC-2010111337

PATIENT
  Age: 38 Year
  Sex: Male
  Weight: 113 kg

DRUGS (16)
  1. LYRICA [Suspect]
     Dosage: 450 MG, 1X/DAY
     Route: 048
     Dates: start: 20100402, end: 20100618
  2. LYRICA [Suspect]
     Dosage: 300 MG, 1X/DAY
     Route: 048
     Dates: start: 20100619, end: 20100624
  3. VENLAFAXINE [Suspect]
     Dosage: BETWEEN 150 MG TO 300 MG
     Route: 048
     Dates: start: 20090923, end: 20100401
  4. VENLAFAXINE [Suspect]
     Dosage: 375 MG, 1X/DAY
     Route: 048
     Dates: start: 20100402, end: 20100525
  5. VENLAFAXINE [Suspect]
     Dosage: 150 MG, 1X/DAY
     Route: 048
     Dates: start: 20100526, end: 20100624
  6. LITHIUM SULFATE [Suspect]
     Dosage: UNK
     Dates: start: 20100519, end: 20100524
  7. LITHIUM SULFATE [Suspect]
     Dosage: 990 MG, 1X/DAY
     Route: 048
     Dates: start: 20100525, end: 20100624
  8. WELLBUTRIN [Suspect]
     Dosage: 150 MG, 1X/DAY
     Route: 048
     Dates: start: 20100527, end: 20100530
  9. WELLBUTRIN [Suspect]
     Dosage: 300 MG, 1X/DAY
     Route: 048
     Dates: start: 20100531, end: 20100624
  10. TEMESTA [Suspect]
     Dosage: UNK
     Dates: start: 20100512, end: 20100611
  11. TEMESTA [Suspect]
     Dosage: 3.5 MG, 1X/DAY
     Route: 048
     Dates: start: 20100612, end: 20100616
  12. TEMESTA [Suspect]
     Dosage: 2.5 MG, 1X/DAY
     Route: 048
     Dates: start: 20100617, end: 20100618
  13. TEMESTA [Suspect]
     Dosage: 1 MG, 1X/DAY
     Route: 048
     Dates: start: 20100619, end: 20100624
  14. PALIPERIDONE [Suspect]
     Dosage: 3 MG, 1X/DAY
     Route: 048
     Dates: start: 20100617, end: 20100622
  15. PALIPERIDONE [Suspect]
     Dosage: 6 MG, 1X/DAY
     Route: 048
     Dates: start: 20100623
  16. PANTOPRAZOLE SODIUM [Concomitant]
     Dosage: 20 MG, 1X/DAY
     Route: 048
     Dates: start: 20100617, end: 20100624

REACTIONS (6)
  - ATRIAL SEPTAL DEFECT [None]
  - DEPRESSION SUICIDAL [None]
  - FATIGUE [None]
  - PERIPHERAL ISCHAEMIA [None]
  - PULMONARY EMBOLISM [None]
  - SEDATION [None]
